FAERS Safety Report 8434357-1 (Version None)
Quarter: 2012Q2

REPORT INFORMATION
  Report Type: 
  Country: None (occurrence: None)
  Receive Date: 20120613
  Receipt Date: 20120607
  Transmission Date: 20120825
  Serious: Yes (Hospitalization)
  Sender: FDA-Public Use
  Company Number: RS-MERCK-1206USA01342

PATIENT
  Age: 62 Year
  Sex: Male

DRUGS (6)
  1. CONCOR [Concomitant]
     Route: 065
  2. FOSINOPRIL SODIUM AND HYDROCHLOROTHIAZIDE [Concomitant]
     Route: 065
  3. FARIN [Concomitant]
     Route: 065
  4. LERCANIDIPINE [Concomitant]
     Route: 065
  5. GLUCOPHAGE [Concomitant]
     Route: 065
  6. INVANZ [Suspect]
     Indication: PROTEUS INFECTION
     Route: 042
     Dates: start: 20120601, end: 20120605

REACTIONS (3)
  - URINARY INCONTINENCE [None]
  - LOSS OF CONSCIOUSNESS [None]
  - MUSCLE SPASMS [None]
